FAERS Safety Report 11499372 (Version 3)
Quarter: 2015Q3

REPORT INFORMATION
  Report Type: Spontaneous
  Country: JP (occurrence: JP)
  Receive Date: 20150914
  Receipt Date: 20150930
  Transmission Date: 20151125
  Serious: Yes (Hospitalization, Other)
  Sender: FDA-Public Use
  Company Number: JP-AMGEN-JPNSP2015093702

PATIENT
  Age: 64 Year

DRUGS (1)
  1. ENBREL [Suspect]
     Active Substance: ETANERCEPT
     Indication: RHEUMATOID ARTHRITIS
     Dosage: 25 MG, EVERY OTHER WEEK
     Route: 058
     Dates: start: 2012, end: 2015

REACTIONS (4)
  - Cholangitis acute [Recovered/Resolved]
  - Pyrexia [Unknown]
  - General physical health deterioration [Unknown]
  - Bile duct stone [Unknown]
